FAERS Safety Report 9038870 (Version 1)
Quarter: 2013Q1

REPORT INFORMATION
  Report Type: Report from Study
  Country: US (occurrence: US)
  Receive Date: 20130129
  Receipt Date: 20130129
  Transmission Date: 20140127
  Serious: No
  Sender: FDA-Public Use
  Company Number: US-ABBOTT-12P-163-0931365-00

PATIENT
  Sex: Female
  Weight: 95.34 kg

DRUGS (6)
  1. HUMIRA 40 MG/0.8 ML PEN [Suspect]
     Indication: RHEUMATOID ARTHRITIS
     Route: 058
     Dates: start: 201202
  2. HUMIRA 40 MG/0.8 ML PEN [Suspect]
     Dosage: WEEKLY LAST MONTH OF THERAPY
     Dates: end: 201204
  3. ARAVA [Concomitant]
     Indication: RHEUMATOID ARTHRITIS
  4. PREDNISONE [Concomitant]
     Indication: RHEUMATOID ARTHRITIS
  5. LEVOTHYROXINE [Concomitant]
     Indication: HYPOTHYROIDISM
  6. UNKNOWN HORMONE PATCH [Concomitant]
     Indication: HORMONE REPLACEMENT THERAPY

REACTIONS (1)
  - Drug ineffective [Not Recovered/Not Resolved]
